FAERS Safety Report 21876787 (Version 2)
Quarter: 2023Q1

REPORT INFORMATION
  Report Type: Spontaneous
  Country: US (occurrence: US)
  Receive Date: 20230118
  Receipt Date: 20230123
  Transmission Date: 20230417
  Serious: No
  Sender: FDA-Public Use
  Company Number: US-AMGEN-USASP2023007246

PATIENT
  Sex: Male

DRUGS (12)
  1. OTEZLA [Suspect]
     Active Substance: APREMILAST
     Indication: Psoriasis
     Dosage: 30 MILLIGRAM, BID
     Route: 048
  2. ATORVASTATIN [Concomitant]
     Active Substance: ATORVASTATIN
     Dosage: 20 MILLIGRAM
  3. GABAPENTIN [Concomitant]
     Active Substance: GABAPENTIN
     Dosage: 100 MILLIGRAM
  4. HYDROCHLOROTHIAZIDE [Concomitant]
     Active Substance: HYDROCHLOROTHIAZIDE
     Dosage: 50 MILLIGRAM
  5. IBUPROFEN [Concomitant]
     Active Substance: IBUPROFEN
     Dosage: 800 MILLIGRAM
  6. METOPROLOL TARTRATE [Concomitant]
     Active Substance: METOPROLOL TARTRATE
     Dosage: 25 MILLIGRAM
  7. MUCINEX [Concomitant]
     Active Substance: GUAIFENESIN
     Dosage: 600 MILLIGRAM
  8. ONDANSETRON [Concomitant]
     Active Substance: ONDANSETRON
     Dosage: 8 MILLIGRAM
  9. SUMATRIPTAN [Concomitant]
     Active Substance: SUMATRIPTAN
     Dosage: 50 MILLIGRAM
  10. TACROLIMUS [Concomitant]
     Active Substance: TACROLIMUS
     Dosage: 0.1 PERCENT
  11. TAMSULOSIN HYDROCHLORIDE [Concomitant]
     Active Substance: TAMSULOSIN HYDROCHLORIDE
     Dosage: 0.4 MILLIGRAM
  12. TRAZODONE HCL [Concomitant]
     Active Substance: TRAZODONE HYDROCHLORIDE
     Dosage: 50 MILLIGRAM

REACTIONS (2)
  - Therapy non-responder [Not Recovered/Not Resolved]
  - Psoriasis [Not Recovered/Not Resolved]
